FAERS Safety Report 16840319 (Version 1)
Quarter: 2019Q3

REPORT INFORMATION
  Report Type: Spontaneous
  Country: DE (occurrence: DE)
  Receive Date: 20190923
  Receipt Date: 20190923
  Transmission Date: 20191005
  Serious: Yes (Other)
  Sender: FDA-Public Use
  Company Number: PHHY2019DE216304

PATIENT
  Sex: Female
  Weight: 49 kg

DRUGS (8)
  1. TRASTUZUMAB. [Suspect]
     Active Substance: TRASTUZUMAB
     Indication: BREAST CANCER FEMALE
     Dosage: 290 MG, Q3W (LAST DOSE PRIOR AE: 02-APR-2014 )
     Route: 042
     Dates: start: 20140226
  2. LONQUEX [Suspect]
     Active Substance: LIPEGFILGRASTIM
     Indication: NEUTROPENIA
     Dosage: UNK UNK, CYCLIC (LAST DOSE PRIOR AE: 04-APR-2014)
     Route: 065
     Dates: start: 20140227
  3. RANITIDINE. [Concomitant]
     Active Substance: RANITIDINE
     Indication: PRODUCT USED FOR UNKNOWN INDICATION
     Dosage: 50 MG, Q3W
     Route: 042
     Dates: start: 20140226, end: 20140430
  4. CARBOPLATIN. [Suspect]
     Active Substance: CARBOPLATIN
     Indication: BREAST CANCER FEMALE
     Dosage: 450 MG, Q3W (LAST DOSE PRIOR AE: 02-APR-2014)
     Route: 042
     Dates: start: 20140226
  5. DEXAMETHASONE. [Concomitant]
     Active Substance: DEXAMETHASONE
     Indication: PRODUCT USED FOR UNKNOWN INDICATION
     Dosage: 4 MG, Q3W
     Route: 042
     Dates: start: 20140226, end: 20140430
  6. DOCETAXEL. [Suspect]
     Active Substance: DOCETAXEL
     Indication: BREAST CANCER FEMALE
     Dosage: 110 MG, Q3W (LAST DOSE PRIOR AE: 02-APR-2014)
     Route: 042
     Dates: start: 20140226
  7. CLEMASTINE [Concomitant]
     Active Substance: CLEMASTINE
     Indication: PRODUCT USED FOR UNKNOWN INDICATION
     Dosage: 2 MG, Q3W
     Route: 042
     Dates: start: 20140226, end: 20140430
  8. ONDANSETRON [Concomitant]
     Active Substance: ONDANSETRON
     Indication: PRODUCT USED FOR UNKNOWN INDICATION
     Dosage: 8 MG, Q3W
     Route: 042
     Dates: start: 20140226, end: 20140430

REACTIONS (2)
  - Leukocytosis [Recovered/Resolved]
  - Thrombocytopenia [Unknown]

NARRATIVE: CASE EVENT DATE: 20140423
